FAERS Safety Report 7580758-3 (Version None)
Quarter: 2011Q2

REPORT INFORMATION
  Report Type: 
  Country: None (occurrence: None)
  Receive Date: 20110629
  Receipt Date: 20110620
  Transmission Date: 20111010
  Serious: Yes (Other)
  Sender: FDA-Public Use
  Company Number: US-CUBIST-2011S1000416

PATIENT
  Sex: Female

DRUGS (1)
  1. CUBICIN [Suspect]
     Indication: POSTOPERATIVE WOUND INFECTION
     Dosage: DOSE UNIT:U UNKNOWN
     Route: 065

REACTIONS (1)
  - THROMBOPHLEBITIS [None]
